FAERS Safety Report 9685682 (Version 1)
Quarter: 2013Q4

REPORT INFORMATION
  Report Type: Spontaneous
  Country: US (occurrence: US)
  Receive Date: 20131113
  Receipt Date: 20131113
  Transmission Date: 20140711
  Serious: No
  Sender: FDA-Public Use
  Company Number: US-PFIZER INC-2013320061

PATIENT
  Age: 21 Year
  Sex: Male

DRUGS (1)
  1. VIAGRA [Suspect]
     Indication: SEXUAL DYSFUNCTION
     Dosage: 200 MG, AS NEEDED
     Dates: start: 201311

REACTIONS (2)
  - Intentional drug misuse [Unknown]
  - Disturbance in sexual arousal [Not Recovered/Not Resolved]
